FAERS Safety Report 4441402-7 (Version None)
Quarter: 2004Q3

REPORT INFORMATION
  Report Type: 
  Country: None (occurrence: None)
  Receive Date: 20040728
  Receipt Date: 20040405
  Transmission Date: 20050211
  Serious: No
  Sender: FDA-Public Use
  Company Number: USA040464161

PATIENT
  Age: 56 Year
  Sex: Female
  Weight: 99 kg

DRUGS (7)
  1. STRATTERA [Suspect]
     Indication: ATTENTION DEFICIT/HYPERACTIVITY DISORDER
     Dosage: 40 MG DAY
     Dates: start: 20040322
  2. DEPAKOTE [Concomitant]
  3. ATENOLOL [Concomitant]
  4. LEXAPRO [Concomitant]
  5. WELLBUTRIN [Concomitant]
  6. SULINDAC [Concomitant]
  7. LORAZEPAM [Concomitant]

REACTIONS (7)
  - DIZZINESS [None]
  - DIZZINESS POSTURAL [None]
  - DRY MOUTH [None]
  - DYSPHONIA [None]
  - NERVOUSNESS [None]
  - TREMOR [None]
  - WEIGHT DECREASED [None]
